FAERS Safety Report 8958841 (Version 2)
Quarter: 2013Q2

REPORT INFORMATION
  Report Type: Spontaneous
  Country: US (occurrence: US)
  Receive Date: 20121212
  Receipt Date: 20130509
  Transmission Date: 20140414
  Serious: Yes (Death)
  Sender: FDA-Public Use
  Company Number: US-ELI_LILLY_AND_COMPANY-US201211009364

PATIENT
  Age: 52 Year
  Sex: Male

DRUGS (2)
  1. ZYPREXA RELPREVV [Suspect]
     Indication: SCHIZOAFFECTIVE DISORDER
     Dosage: 300 MG, 2/M
     Route: 030
     Dates: start: 20121114
  2. OLANZAPINE [Suspect]
     Indication: SCHIZOAFFECTIVE DISORDER

REACTIONS (4)
  - Death [Fatal]
  - Aggression [Unknown]
  - Tremor [Unknown]
  - Abnormal behaviour [Unknown]
